FAERS Safety Report 8390320-0 (Version None)
Quarter: 2012Q2

REPORT INFORMATION
  Report Type: 
  Country: None (occurrence: None)
  Receive Date: 20120529
  Receipt Date: 20120522
  Transmission Date: 20120825
  Serious: Yes (Hospitalization)
  Sender: FDA-Public Use
  Company Number: US-PFIZER INC-2012124338

PATIENT
  Sex: Female
  Weight: 52.154 kg

DRUGS (2)
  1. GENOTROPIN [Suspect]
     Indication: TURNER'S SYNDROME
     Dosage: 2 MG, DAILY
     Dates: start: 20050101, end: 20120518
  2. PREMARIN [Suspect]
     Dosage: 0.3 MG, DAILY
     Route: 048
     Dates: start: 20110101

REACTIONS (3)
  - TREMOR [None]
  - HEADACHE [None]
  - TEARFULNESS [None]
